FAERS Safety Report 5862644-X (Version None)
Quarter: 2008Q3

REPORT INFORMATION
  Report Type: 
  Country: None (occurrence: None)
  Receive Date: 20080827
  Receipt Date: 20080827
  Transmission Date: 20090109
  Serious: Yes (Other)
  Sender: FDA-Public Use
  Company Number: None

PATIENT
  Age: 61 Year
  Sex: Male
  Weight: 86.1834 kg

DRUGS (1)
  1. LOVENOX [Suspect]
     Indication: THROMBOSIS
     Dosage: 80 MG INJECTION 2 TIME DAILY SQ
     Route: 058
     Dates: start: 20080819, end: 20080825

REACTIONS (6)
  - CEREBROVASCULAR ACCIDENT [None]
  - CHEST PAIN [None]
  - CHILLS [None]
  - DRUG HYPERSENSITIVITY [None]
  - DYSPNOEA [None]
  - PAIN [None]
